FAERS Safety Report 4522832-1 (Version None)
Quarter: 2004Q4

REPORT INFORMATION
  Report Type: 
  Country: None (occurrence: None)
  Receive Date: 20041209
  Receipt Date: 20041102
  Transmission Date: 20050328
  Serious: Yes (Hospitalization, Other)
  Sender: FDA-Public Use
  Company Number: US-MERCK-0411USA00438

PATIENT
  Age: 79 Year
  Sex: Male

DRUGS (10)
  1. VIOXX [Suspect]
     Indication: ARTHRITIS
     Route: 065
     Dates: start: 20020405, end: 20040903
  2. VIOXX [Suspect]
     Route: 065
     Dates: start: 20040904, end: 20041028
  3. VIOXX [Suspect]
     Indication: LOCALISED OSTEOARTHRITIS
     Route: 065
     Dates: start: 20020405, end: 20040903
  4. VIOXX [Suspect]
     Route: 065
     Dates: start: 20040904, end: 20041028
  5. ATENOLOL [Concomitant]
     Route: 065
  6. IMDUR [Concomitant]
     Route: 065
  7. HYDROCHLOROTHIAZIDE [Concomitant]
     Route: 065
  8. PRAVACHOL [Concomitant]
     Route: 065
  9. PLAVIX [Concomitant]
     Route: 065
  10. ASPIRIN [Concomitant]
     Route: 065

REACTIONS (5)
  - AORTIC ATHEROSCLEROSIS [None]
  - CEREBROVASCULAR ACCIDENT [None]
  - HEMIANOPIA [None]
  - HEMIPARESIS [None]
  - THROMBOSIS [None]
